FAERS Safety Report 8910639 (Version 1)
Quarter: 2012Q4

REPORT INFORMATION
  Report Type: 
  Country: NZ (occurrence: None)
  Receive Date: 20121108
  Receipt Date: 20121108
  Transmission Date: 20130627
  Serious: Yes (Hospitalization)
  Sender: FDA-Public Use
  Company Number: PRED20120065

PATIENT
  Age: 83 Year
  Sex: Male

DRUGS (8)
  1. PREDNISONE [Suspect]
     Indication: POLYARTERITIS NODOSA
     Dosage: 40 mg,  1 in 1 D,  Oral
     Route: 048
  2. PREDNISONE [Suspect]
     Indication: RHEUMATOID ARTHRITIS
     Dosage: 40 mg,  1 in 1 D,  Oral
     Route: 048
  3. PREDNISONE [Suspect]
     Dosage: 40 mg,  1 in 1 D,  Oral
     Route: 048
  4. METHOTREXATE (METHOTREXATE) [Concomitant]
  5. ALENDRONATE (ALENDRONATE SODIUM) [Concomitant]
  6. OMEPRAZOLE (OMEPRAZOLE) [Concomitant]
  7. FOLIC ACID TABLETS (FOLIC ACID) [Concomitant]
  8. PARACETAMOL (PARACETAMOL) [Concomitant]

REACTIONS (2)
  - Monocytosis [None]
  - Neutrophilia [None]
